FAERS Safety Report 25687189 (Version 1)
Quarter: 2025Q3

REPORT INFORMATION
  Report Type: Spontaneous
  Country: EU (occurrence: EU)
  Receive Date: 20250816
  Receipt Date: 20250816
  Transmission Date: 20251021
  Serious: Yes (Death, Life-Threatening, Other)
  Sender: AMGEN
  Company Number: EU-AMGEN-BELSP2025159146

PATIENT
  Age: 16 Year
  Sex: Male

DRUGS (8)
  1. FILGRASTIM [Suspect]
     Active Substance: FILGRASTIM
     Indication: Allogenic stem cell transplantation
     Dosage: 300 MICROGRAM, QD, ON DAYS 16, 17, AND 19,
     Route: 065
  2. TREOSULFAN [Concomitant]
     Active Substance: TREOSULFAN
     Dosage: 14 GRAM PER SQUARE METRE, QD, FROM DAY -7 TO TO DAY -5
  3. FLUDARABINE [Concomitant]
     Active Substance: FLUDARABINE PHOSPHATE
     Dosage: 30 MILLIGRAM/SQ. METER, QD (FROM DAY -7 TO DAY-3)
  4. THIOTEPA [Concomitant]
     Active Substance: THIOTEPA
  5. TACROLIMUS [Concomitant]
     Active Substance: TACROLIMUS
     Indication: Graft versus host disease
  6. MYCOPHENOLATE MOFETIL [Concomitant]
     Active Substance: MYCOPHENOLATE MOFETIL
  7. METHOTREXATE [Concomitant]
     Active Substance: METHOTREXATE
  8. CYCLOPHOSPHAMIDE [Concomitant]
     Active Substance: CYCLOPHOSPHAMIDE

REACTIONS (24)
  - Pneumonia [Fatal]
  - Graft versus host disease [Unknown]
  - Osmotic demyelination syndrome [Unknown]
  - Bell^s palsy [Unknown]
  - Altered state of consciousness [Unknown]
  - Epilepsy [Unknown]
  - Dysmetria [Unknown]
  - Pyramidal tract syndrome [Unknown]
  - Hallucination [Unknown]
  - Transplant failure [Unknown]
  - Renal impairment [Unknown]
  - Pyrexia [Unknown]
  - Diarrhoea [Unknown]
  - Speech disorder [Unknown]
  - Dysphagia [Unknown]
  - Diplopia [Unknown]
  - Ataxia [Unknown]
  - Hyperreflexia [Unknown]
  - Adenovirus reactivation [Unknown]
  - Proteinuria [Unknown]
  - Glycosuria [Unknown]
  - Parvovirus B19 infection [Unknown]
  - Gastrointestinal disorder [Unknown]
  - Liver disorder [Unknown]
